FAERS Safety Report 7016084-0 (Version None)
Quarter: 2010Q3

REPORT INFORMATION
  Report Type: 
  Country: None (occurrence: None)
  Receive Date: 20100927
  Receipt Date: 20100921
  Transmission Date: 20110219
  Serious: Yes (Other)
  Sender: FDA-Public Use
  Company Number: BR-BAYER-201019166LA

PATIENT
  Age: 21 Year
  Sex: Female
  Weight: 72 kg

DRUGS (2)
  1. AVELOX [Suspect]
     Indication: PNEUMONIA
     Dosage: TOTAL DAILY DOSE: 400 MG  UNIT DOSE: 400 MG
     Route: 048
     Dates: start: 20100920
  2. AIRES [Concomitant]
     Indication: PNEUMONIA
     Dosage: 1 SACHET EACH 8 HOURS
     Route: 048
     Dates: start: 20100921

REACTIONS (1)
  - HAEMOPTYSIS [None]
